FAERS Safety Report 9684765 (Version 2)
Quarter: 2015Q3

REPORT INFORMATION
  Report Type: Report from Study
  Country: US (occurrence: US)
  Receive Date: 20131112
  Receipt Date: 20150928
  Transmission Date: 20151125
  Serious: Yes (Hospitalization)
  Sender: FDA-Public Use
  Company Number: US-ROCHE-1302482

PATIENT
  Sex: Female
  Weight: 66.36 kg

DRUGS (13)
  1. DILTIAZEM [Concomitant]
     Active Substance: DILTIAZEM
     Route: 065
     Dates: start: 2010
  2. NASONEX [Concomitant]
     Active Substance: MOMETASONE FUROATE
     Dosage: 1 SPRAY
     Route: 045
     Dates: start: 2011
  3. SINGULAIR [Concomitant]
     Active Substance: MONTELUKAST SODIUM
     Route: 065
     Dates: start: 2004
  4. ASMANEX [Concomitant]
     Active Substance: MOMETASONE FUROATE
     Dosage: 1 SPRAY
     Route: 045
     Dates: start: 2011
  5. ASMANEX [Concomitant]
     Active Substance: MOMETASONE FUROATE
     Route: 055
     Dates: start: 2006
  6. ALBUTEROL. [Concomitant]
     Active Substance: ALBUTEROL
     Route: 055
     Dates: start: 2004
  7. FORADIL [Concomitant]
     Active Substance: FORMOTEROL FUMARATE
     Dosage: 1CAP IHU
     Route: 055
     Dates: start: 2005
  8. ALBUTEROL INHALATION SOLUTION [Concomitant]
     Active Substance: ALBUTEROL
     Dosage: 1UD
     Route: 055
     Dates: start: 2004
  9. DALIRESP [Concomitant]
     Active Substance: ROFLUMILAST
     Route: 065
     Dates: start: 2012
  10. COZAAR [Concomitant]
     Active Substance: LOSARTAN POTASSIUM
     Route: 065
     Dates: start: 2012
  11. ZYFLO [Concomitant]
     Active Substance: ZILEUTON
  12. TUDORZA PRESSAIR [Concomitant]
     Active Substance: ACLIDINIUM BROMIDE
  13. XOLAIR [Suspect]
     Active Substance: OMALIZUMAB
     Indication: ASTHMA
     Dosage: INJECT BELOW SKIN
     Route: 058
     Dates: start: 20110622

REACTIONS (2)
  - Influenza [Unknown]
  - Asthma [Unknown]
